FAERS Safety Report 11544485 (Version 1)
Quarter: 2015Q3

REPORT INFORMATION
  Report Type: Spontaneous
  Country: US (occurrence: US)
  Receive Date: 20150924
  Receipt Date: 20150924
  Transmission Date: 20151125
  Serious: Yes (Death, Other)
  Sender: FDA-Public Use
  Company Number: US-SUN PHARMACEUTICAL INDUSTRIES LTD-13SUNLAT05P

PATIENT
  Age: 65 Year
  Sex: Male

DRUGS (4)
  1. VISCUM ALBUM [Interacting]
     Active Substance: VISCUM ALBUM FRUITING TOP
     Indication: NEOPLASM MALIGNANT
     Dosage: INJECTIONS EVERY 3 DAYS
     Route: 065
  2. VALPROIC ACID. [Interacting]
     Active Substance: VALPROIC ACID
     Indication: SEIZURE
     Dosage: UNK
     Route: 065
  3. LEVETIRACETAM. [Suspect]
     Active Substance: LEVETIRACETAM
     Indication: SEIZURE
     Dosage: UNK
     Route: 065
  4. ASCORBIC ACID. [Interacting]
     Active Substance: ASCORBIC ACID
     Indication: NEOPLASM MALIGNANT
     Dosage: INFUSIONS BIWEEKLY
     Route: 065

REACTIONS (13)
  - Confusional state [Unknown]
  - Drug ineffective [Unknown]
  - Seizure [None]
  - Small cell lung cancer metastatic [None]
  - Malignant neoplasm progression [None]
  - Death [Fatal]
  - Fatigue [Unknown]
  - Drug interaction [Unknown]
  - Cerebral haemorrhage [Unknown]
  - Agitation [Unknown]
  - Hemiparesis [Unknown]
  - Oedema [Unknown]
  - Neurological decompensation [Unknown]
